FAERS Safety Report 9613761 (Version 2)
Quarter: 2013Q4

REPORT INFORMATION
  Report Type: Spontaneous
  Country: AU (occurrence: AU)
  Receive Date: 20131010
  Receipt Date: 20131018
  Transmission Date: 20140711
  Serious: Yes (Hospitalization)
  Sender: FDA-Public Use
  Company Number: PHHY2013AU113582

PATIENT
  Sex: Female

DRUGS (1)
  1. ACLASTA [Suspect]
     Dosage: UNK
     Route: 042

REACTIONS (1)
  - Chronic obstructive pulmonary disease [Unknown]
